FAERS Safety Report 14861455 (Version 1)
Quarter: 2018Q2

REPORT INFORMATION
  Report Type: Spontaneous
  Country: FR (occurrence: FR)
  Receive Date: 20180508
  Receipt Date: 20180508
  Transmission Date: 20180711
  Serious: Yes (Death, Hospitalization, Other)
  Sender: FDA-Public Use
  Company Number: FR-LEADIANT BIOSCIENCES INC-2018STPI000265

PATIENT
  Age: 42 Year
  Sex: Female

DRUGS (5)
  1. DOXORUBICIN HYDROCHLORIDE. [Suspect]
     Active Substance: DOXORUBICIN HYDROCHLORIDE
     Indication: BRAIN NEOPLASM
     Dosage: UNK
  2. MATULANE [Suspect]
     Active Substance: PROCARBAZINE HYDROCHLORIDE
     Indication: HODGKIN^S DISEASE
  3. TENIPOSIDE. [Suspect]
     Active Substance: TENIPOSIDE
     Indication: BRAIN NEOPLASM
     Dosage: 60 MG/M2, UNK
     Dates: start: 197603
  4. LOMUSTINE. [Suspect]
     Active Substance: LOMUSTINE
     Indication: BRAIN NEOPLASM
     Dosage: 60 MG/M2, UNK
     Dates: start: 197603
  5. NATULAN [Suspect]
     Active Substance: PROCARBAZINE HYDROCHLORIDE
     Indication: HODGKIN^S DISEASE
     Dosage: UNK

REACTIONS (2)
  - Second primary malignancy [Fatal]
  - Acute myeloid leukaemia [Fatal]
